FAERS Safety Report 25544940 (Version 1)
Quarter: 2025Q3

REPORT INFORMATION
  Report Type: Spontaneous
  Country: EU (occurrence: EU)
  Receive Date: 20250711
  Receipt Date: 20250711
  Transmission Date: 20251020
  Serious: Yes (Other)
  Sender: NOVARTIS
  Company Number: EU-002147023-NVSC2025HR079022

PATIENT

DRUGS (1)
  1. KESIMPTA [Suspect]
     Active Substance: OFATUMUMAB
     Indication: Foetal exposure during pregnancy
     Route: 064
     Dates: start: 202306, end: 20250413

REACTIONS (3)
  - Premature baby [Recovered/Resolved]
  - Foetal exposure during pregnancy [Unknown]
  - Normal newborn [Unknown]
